FAERS Safety Report 5614985-9 (Version None)
Quarter: 2008Q1

REPORT INFORMATION
  Report Type: 
  Country: None (occurrence: None)
  Receive Date: 20080206
  Receipt Date: 20080128
  Transmission Date: 20080703
  Serious: Yes (Hospitalization)
  Sender: FDA-Public Use
  Company Number: PHBS2007IT13460

PATIENT
  Age: 75 Year
  Sex: Female

DRUGS (5)
  1. ESIDRIX [Suspect]
     Indication: HYPERTENSION
     Dosage: 25 MG/DAY
     Route: 048
     Dates: start: 20070726, end: 20070803
  2. SELOKEN [Concomitant]
     Dosage: 100 MG/DAY
  3. ASPIRIN [Concomitant]
     Dosage: 100 MG/DAY
  4. DEPONIT [Concomitant]
     Dosage: 10 MG/DAY
  5. MODURETIC 5-50 [Concomitant]
     Dates: start: 20020101, end: 20070725

REACTIONS (6)
  - ABDOMINAL PAIN UPPER [None]
  - ALANINE AMINOTRANSFERASE INCREASED [None]
  - ASPARTATE AMINOTRANSFERASE INCREASED [None]
  - BLOOD BILIRUBIN INCREASED [None]
  - HEPATITIS ACUTE [None]
  - VOMITING [None]
